FAERS Safety Report 4983073-7 (Version None)
Quarter: 2006Q2

REPORT INFORMATION
  Report Type: 
  Country: None (occurrence: None)
  Receive Date: 20060420
  Receipt Date: 20060125
  Transmission Date: 20061013
  Serious: No
  Sender: FDA-Public Use
  Company Number: 2005PV000794

PATIENT
  Age: 63 Year
  Sex: Female
  Weight: 101.8325 kg

DRUGS (17)
  1. BYETTA [Suspect]
     Indication: DIABETES MELLITUS NON-INSULIN-DEPENDENT
     Dosage: 5 MCG BID SC ; 10 MCG BID SC
     Route: 058
     Dates: start: 20050729, end: 20050831
  2. BYETTA [Suspect]
     Indication: DIABETES MELLITUS NON-INSULIN-DEPENDENT
     Dosage: 5 MCG BID SC ; 10 MCG BID SC
     Route: 058
     Dates: start: 20050901, end: 20050921
  3. GLIPIZIDE [Concomitant]
  4. ACTOS [Concomitant]
  5. ALLOPURINOL [Concomitant]
  6. ZYRTEC [Concomitant]
  7. ISOSORBIDE MONONITRATE [Concomitant]
  8. ATENOLOL [Concomitant]
  9. FLUOXETINE [Concomitant]
  10. COZAAR [Concomitant]
  11. ZOCOR [Concomitant]
  12. ASPIRIN [Concomitant]
  13. ALLEGRA [Concomitant]
  14. FOLTX [Concomitant]
  15. METFORMIN [Concomitant]
  16. ONE A DAY [Concomitant]
  17. BAKING SODA [Concomitant]

REACTIONS (12)
  - BLOOD GLUCOSE INCREASED [None]
  - BREAST CANCER FEMALE [None]
  - DYSGEUSIA [None]
  - EMOTIONAL DISORDER [None]
  - FLATULENCE [None]
  - HAIR GROWTH ABNORMAL [None]
  - INFLAMMATION [None]
  - METASTASES TO LYMPH NODES [None]
  - NAIL DISORDER [None]
  - NAUSEA [None]
  - RASH [None]
  - WEIGHT INCREASED [None]
